FAERS Safety Report 10064203 (Version 1)
Quarter: 2014Q2

REPORT INFORMATION
  Report Type: Report from Study
  Country: CA (occurrence: CA)
  Receive Date: 20140408
  Receipt Date: 20140408
  Transmission Date: 20141212
  Serious: Yes (Hospitalization)
  Sender: FDA-Public Use
  Company Number: CA-JNJFOC-20140401604

PATIENT
  Age: 26 Year
  Sex: Female
  Weight: 49 kg

DRUGS (3)
  1. REMICADE [Suspect]
     Indication: COLITIS ULCERATIVE
     Dosage: 0, 2, 6 WEEKS
     Route: 042
     Dates: start: 20140228
  2. PREDNISONE [Concomitant]
     Route: 065
  3. IMURAN [Concomitant]
     Route: 065

REACTIONS (2)
  - Pancreatitis [Recovering/Resolving]
  - Clostridium difficile infection [Recovering/Resolving]
